FAERS Safety Report 5922620-5 (Version None)
Quarter: 2008Q4

REPORT INFORMATION
  Report Type: 
  Country: None (occurrence: None)
  Receive Date: 20081017
  Receipt Date: 20081006
  Transmission Date: 20090506
  Serious: Yes (Other)
  Sender: FDA-Public Use
  Company Number: CN-ROCHE-590147

PATIENT
  Age: 60 Year
  Sex: Female
  Weight: 80 kg

DRUGS (1)
  1. XELODA [Suspect]
     Indication: RECTAL CANCER
     Route: 048
     Dates: start: 20050701, end: 20060701

REACTIONS (4)
  - FALL [None]
  - METASTASES TO BONE [None]
  - THORACIC VERTEBRAL FRACTURE [None]
  - VOMITING [None]
